FAERS Safety Report 19474726 (Version 2)
Quarter: 2021Q3

REPORT INFORMATION
  Report Type: Spontaneous
  Country: US (occurrence: US)
  Receive Date: 20210630
  Receipt Date: 20210714
  Transmission Date: 20211014
  Serious: No
  Sender: FDA-Public Use
  Company Number: US-BIOGEN-2021BI01025179

PATIENT
  Sex: Female

DRUGS (1)
  1. TYSABRI [Suspect]
     Active Substance: NATALIZUMAB
     Indication: MULTIPLE SCLEROSIS
     Route: 065
     Dates: start: 20210623, end: 20210623

REACTIONS (3)
  - Infusion site extravasation [Recovered/Resolved]
  - Infusion site mass [Recovered/Resolved]
  - Infusion site pain [Recovered/Resolved]
